FAERS Safety Report 6142788-8 (Version None)
Quarter: 2009Q2

REPORT INFORMATION
  Report Type: 
  Country: None (occurrence: None)
  Receive Date: 20090403
  Receipt Date: 20090331
  Transmission Date: 20091009
  Serious: Yes (Other)
  Sender: FDA-Public Use
  Company Number: DE-AVENTIS-200910270DE

PATIENT
  Age: 94 Year
  Sex: Female

DRUGS (1)
  1. AMARYL [Suspect]
     Dosage: DOSE: NOT REPORTED
     Route: 048
     Dates: start: 20081101, end: 20090129

REACTIONS (4)
  - BLOOD GLUCOSE INCREASED [None]
  - DRUG INEFFECTIVE [None]
  - HALLUCINATION [None]
  - PRODUCT QUALITY ISSUE [None]
